FAERS Safety Report 5784216-8 (Version None)
Quarter: 2008Q2

REPORT INFORMATION
  Report Type: 
  Country: None (occurrence: None)
  Receive Date: 20080619
  Receipt Date: 20080619
  Transmission Date: 20081010
  Serious: Yes (Hospitalization)
  Sender: FDA-Public Use
  Company Number: None

PATIENT
  Age: 57 Year
  Sex: Female
  Weight: 53 kg

DRUGS (1)
  1. PARNATE [Suspect]
     Indication: DEPRESSION
     Dosage: 30 MG QID PO
     Route: 048
     Dates: start: 20080301, end: 20080601

REACTIONS (1)
  - OVERDOSE [None]
